FAERS Safety Report 7795747-3 (Version None)
Quarter: 2011Q4

REPORT INFORMATION
  Report Type: 
  Country: None (occurrence: None)
  Receive Date: 20111004
  Receipt Date: 20110927
  Transmission Date: 20120403
  Serious: Yes (Other)
  Sender: FDA-Public Use
  Company Number: DE-PFIZER INC-2011230517

PATIENT
  Age: 14 Year
  Sex: Male

DRUGS (1)
  1. SOMATROPIN [Suspect]

REACTIONS (1)
  - ANKYLOSING SPONDYLITIS [None]
